FAERS Safety Report 9346766 (Version 1)
Quarter: 2013Q2

REPORT INFORMATION
  Report Type: Spontaneous
  Country: US (occurrence: US)
  Receive Date: 20130613
  Receipt Date: 20130613
  Transmission Date: 20140414
  Serious: No
  Sender: FDA-Public Use
  Company Number: US-MYLANLABS-2013S1006973

PATIENT
  Age: 80 Year
  Sex: Female

DRUGS (5)
  1. CLOPIDOGREL TABLETS USP [Suspect]
     Indication: CEREBROVASCULAR ACCIDENT
     Route: 048
     Dates: start: 2012
  2. DONEPEZIL [Concomitant]
     Indication: DEMENTIA
  3. MULTIVITAMIN [Concomitant]
  4. VITAMIN D3 [Concomitant]
  5. FISH OIL [Concomitant]

REACTIONS (1)
  - Contusion [Not Recovered/Not Resolved]
